FAERS Safety Report 8902304 (Version 1)
Quarter: 2012Q4

REPORT INFORMATION
  Report Type: 
  Country: VE (occurrence: VE)
  Receive Date: 20121112
  Receipt Date: 20121112
  Transmission Date: 20130627
  Serious: Yes (Hospitalization)
  Sender: FDA-Public Use
  Company Number: VE-ASTELLAS-2012US010860

PATIENT
  Age: 60 Year
  Sex: Male

DRUGS (3)
  1. TARCEVA [Suspect]
     Indication: LUNG NEOPLASM MALIGNANT
     Dosage: 150 mg, UID/QD
     Route: 048
     Dates: start: 20120701
  2. FLUCONAZOLE [Suspect]
     Indication: PRODUCT USED FOR UNKNOWN INDICATION
  3. OMEPRAZOLE [Concomitant]
     Indication: PRODUCT USED FOR UNKNOWN INDICATION
     Dosage: UNK
     Route: 065

REACTIONS (5)
  - Anaemia [Recovered/Resolved]
  - Oesophageal candidiasis [Recovered/Resolved]
  - Dehydration [Recovered/Resolved]
  - Gastric ulcer haemorrhage [Recovered/Resolved]
  - Diarrhoea [Not Recovered/Not Resolved]
